FAERS Safety Report 4986941-5 (Version None)
Quarter: 2006Q2

REPORT INFORMATION
  Report Type: 
  Country: None (occurrence: None)
  Receive Date: 20060501
  Receipt Date: 20040730
  Transmission Date: 20061013
  Serious: Yes (Life-Threatening)
  Sender: FDA-Public Use
  Company Number: PHHO2004JP10864

PATIENT
  Age: 62 Year
  Sex: Male
  Weight: 58.9 kg

DRUGS (3)
  1. GLEEVEC [Suspect]
     Indication: GASTROINTESTINAL STROMAL TUMOUR
     Dosage: 400 MG, QD
     Route: 048
     Dates: start: 20051203, end: 20051231
  2. GLEEVEC [Suspect]
     Dosage: 400 MG, QD
     Route: 048
     Dates: start: 20031217, end: 20051031
  3. FOLIAMIN [Concomitant]
     Indication: ANAEMIA
     Dates: start: 20041227

REACTIONS (11)
  - ANOREXIA [None]
  - BILE DUCT STONE [None]
  - BLOOD CREATININE INCREASED [None]
  - BLOOD UREA INCREASED [None]
  - CHOLANGITIS [None]
  - DRUG ERUPTION [None]
  - EOSINOPHIL COUNT INCREASED [None]
  - FACE OEDEMA [None]
  - OEDEMA PERIPHERAL [None]
  - PANCYTOPENIA [None]
  - PROTEINURIA [None]
